FAERS Safety Report 15028800 (Version 3)
Quarter: 2018Q3

REPORT INFORMATION
  Report Type: Spontaneous
  Country: US (occurrence: US)
  Receive Date: 20180619
  Receipt Date: 20180912
  Transmission Date: 20181010
  Serious: Yes (Other)
  Sender: FDA-Public Use
  Company Number: US-SA-2018SA058146

PATIENT
  Age: 46 Year
  Sex: Female
  Weight: 56 kg

DRUGS (10)
  1. NEOSAR [Concomitant]
     Active Substance: CYCLOPHOSPHAMIDE
  2. NEULASTA [Concomitant]
     Active Substance: PEGFILGRASTIM
  3. FAMOTIDINE. [Concomitant]
     Active Substance: FAMOTIDINE
     Route: 065
  4. PROCHLORPERAZINE. [Concomitant]
     Active Substance: PROCHLORPERAZINE
  5. MYCOSTATIN [Concomitant]
     Active Substance: NYSTATIN
  6. ADRIAMYCIN [DOXORUBICIN HYDROCHLORIDE] [Concomitant]
  7. TAXOTERE [Suspect]
     Active Substance: DOCETAXEL
     Dosage: UNK UNK,Q3W
     Route: 042
     Dates: start: 20130614, end: 20130614
  8. LORAZEPAM. [Concomitant]
     Active Substance: LORAZEPAM
     Dosage: UNK
  9. ZOFRAN [ONDANSETRON] [Concomitant]
  10. TAXOTERE [Suspect]
     Active Substance: DOCETAXEL
     Indication: BREAST CANCER
     Dosage: 120?123MG, Q3W
     Route: 042
     Dates: start: 20130305, end: 20130305

REACTIONS (1)
  - Alopecia [Recovering/Resolving]

NARRATIVE: CASE EVENT DATE: 20131106
